FAERS Safety Report 15031474 (Version 4)
Quarter: 2019Q2

REPORT INFORMATION
  Report Type: Spontaneous
  Country: US (occurrence: US)
  Receive Date: 20180619
  Receipt Date: 20190517
  Transmission Date: 20190711
  Serious: No
  Sender: FDA-Public Use
  Company Number: US-ACTELION-A-NJ2018-174073

PATIENT
  Age: 76 Year
  Sex: Female

DRUGS (6)
  1. COREG [Concomitant]
     Active Substance: CARVEDILOL
     Dosage: 25 MG, BID
     Dates: start: 2018
  2. ADEMPAS [Concomitant]
     Active Substance: RIOCIGUAT
     Dosage: 2MG/8 MG/1.5 MG
     Dates: start: 2016
  3. AMLODIPINE [Concomitant]
     Active Substance: AMLODIPINE BESYLATE
     Dosage: 10 MG, QD
     Dates: start: 2018
  4. OPSUMIT [Suspect]
     Active Substance: MACITENTAN
     Indication: PULMONARY ARTERIAL HYPERTENSION
     Dosage: 10 MG, QD
     Route: 048
     Dates: start: 201901, end: 20190301
  5. OPSUMIT [Suspect]
     Active Substance: MACITENTAN
     Dosage: 10 MG, QD
     Route: 048
     Dates: start: 20180511, end: 20180815
  6. LASIX [Concomitant]
     Active Substance: FUROSEMIDE
     Dosage: 10 MG AND 80 MG BID
     Dates: start: 2018

REACTIONS (5)
  - Blood pressure systolic increased [Unknown]
  - Headache [Unknown]
  - Dizziness [Recovered/Resolved]
  - Swelling [Unknown]
  - Peripheral swelling [Unknown]

NARRATIVE: CASE EVENT DATE: 20180521
